FAERS Safety Report 25739193 (Version 1)
Quarter: 2025Q3

REPORT INFORMATION
  Report Type: Spontaneous
  Country: US (occurrence: US)
  Receive Date: 20250829
  Receipt Date: 20250829
  Transmission Date: 20251020
  Serious: No
  Sender: BOEHRINGER INGELHEIM
  Company Number: US-Komodo Health-a23aa000009jmphAAA

PATIENT
  Age: 64 Year
  Sex: Male

DRUGS (2)
  1. JARDIANCE [Suspect]
     Active Substance: EMPAGLIFLOZIN
     Indication: Type 2 diabetes mellitus
     Dosage: 10 MG DAILY
     Dates: start: 202501
  2. METFORMIN [Concomitant]
     Active Substance: METFORMIN HYDROCHLORIDE
     Indication: Product used for unknown indication

REACTIONS (5)
  - Hypoglycaemia [Recovered/Resolved]
  - Glycosylated haemoglobin increased [Unknown]
  - Glomerular filtration rate increased [Unknown]
  - Blood pressure decreased [Not Recovered/Not Resolved]
  - Ketonuria [Unknown]

NARRATIVE: CASE EVENT DATE: 20250101
